FAERS Safety Report 18523289 (Version 2)
Quarter: 2020Q4

REPORT INFORMATION
  Report Type: Spontaneous
  Country: US (occurrence: US)
  Receive Date: 20201119
  Receipt Date: 20201126
  Transmission Date: 20210114
  Serious: Yes (Other)
  Sender: FDA-Public Use
  Company Number: US-IPSEN BIOPHARMACEUTICALS, INC.-2020-22387

PATIENT
  Age: 65 Year
  Sex: Female
  Weight: 101.6 kg

DRUGS (2)
  1. SOMATULINE DEPOT [Suspect]
     Active Substance: LANREOTIDE ACETATE
     Indication: CARCINOID TUMOUR OF THE SMALL BOWEL
     Route: 058
     Dates: start: 20181212
  2. SOMATULINE DEPOT [Suspect]
     Active Substance: LANREOTIDE ACETATE
     Indication: NEUROENDOCRINE CARCINOMA METASTATIC

REACTIONS (3)
  - Rhinorrhoea [Not Recovered/Not Resolved]
  - Knee arthroplasty [Unknown]
  - Sinus operation [Unknown]

NARRATIVE: CASE EVENT DATE: 20201111
